FAERS Safety Report 9223169 (Version 2)
Quarter: 2013Q2

REPORT INFORMATION
  Report Type: Spontaneous
  Country: SG (occurrence: SG)
  Receive Date: 20130410
  Receipt Date: 20130621
  Transmission Date: 20140414
  Serious: Yes (Hospitalization, Other)
  Sender: FDA-Public Use
  Company Number: SG-ROCHE-1210016

PATIENT
  Age: 57 Year
  Sex: Male

DRUGS (1)
  1. ACTILYSE [Suspect]
     Indication: ISCHAEMIC STROKE
     Route: 065
     Dates: start: 20080829, end: 20080829

REACTIONS (2)
  - Cerebral artery embolism [Unknown]
  - Hemiparesis [Recovered/Resolved]
